FAERS Safety Report 9434275 (Version 3)
Quarter: 2013Q3

REPORT INFORMATION
  Report Type: Report from Study
  Country: AU (occurrence: AU)
  Receive Date: 20130801
  Receipt Date: 20130812
  Transmission Date: 20140515
  Serious: Yes (Life-Threatening, Hospitalization, Other)
  Sender: FDA-Public Use
  Company Number: PHHY2013AU067435

PATIENT
  Age: 37 Year
  Sex: Male

DRUGS (8)
  1. CLOZARIL [Suspect]
     Indication: SCHIZOPHRENIA
     Dosage: 275 MG, UNK
     Route: 048
     Dates: start: 2001
  2. CLOZARIL [Suspect]
     Dosage: UNK
     Route: 048
     Dates: start: 20020805, end: 200509
  3. CLOZARIL [Suspect]
     Dosage: UNK
     Route: 048
     Dates: start: 201306
  4. CLOZARIL [Suspect]
     Dosage: 275 MG, DAILY
     Route: 048
     Dates: start: 20130728, end: 20130728
  5. CLOPINE [Suspect]
     Dosage: UNK
  6. INTERFERON [Concomitant]
     Dosage: UNK
  7. RIBAVIRIN [Concomitant]
     Dosage: UNK
  8. INOTROP [Concomitant]
     Indication: BLOOD PRESSURE DECREASED

REACTIONS (9)
  - Meningococcal sepsis [Recovered/Resolved]
  - Infection [Unknown]
  - Febrile neutropenia [Recovered/Resolved]
  - Neutropenia [Recovered/Resolved]
  - White blood cell count decreased [Recovered/Resolved]
  - Agranulocytosis [Unknown]
  - Malaise [Unknown]
  - White blood cell count increased [Unknown]
  - Neutrophil count increased [Unknown]
